FAERS Safety Report 24958675 (Version 1)
Quarter: 2025Q1

REPORT INFORMATION
  Report Type: Spontaneous
  Country: GB (occurrence: GB)
  Receive Date: 20250212
  Receipt Date: 20250212
  Transmission Date: 20250409
  Serious: Yes (Other)
  Sender: HETERO
  Company Number: None

PATIENT
  Age: 18 Year
  Sex: Male

DRUGS (2)
  1. DULOXETINE [Suspect]
     Active Substance: DULOXETINE
     Indication: Anxiety
     Dosage: 30 MILLIGRAM, Q.A.M.
     Route: 065
     Dates: start: 20250128, end: 20250129
  2. PROPRANOLOL [Concomitant]
     Active Substance: PROPRANOLOL HYDROCHLORIDE
     Indication: Panic attack
     Route: 065
     Dates: start: 20250103

REACTIONS (5)
  - Confusional state [Recovered/Resolved]
  - Vision blurred [Recovering/Resolving]
  - Vomiting [Recovered/Resolved]
  - Erectile dysfunction [Unknown]
  - Nausea [Unknown]

NARRATIVE: CASE EVENT DATE: 20250128
